FAERS Safety Report 10777118 (Version 1)
Quarter: 2015Q1

REPORT INFORMATION
  Report Type: Spontaneous
  Country: US (occurrence: None)
  Receive Date: 20150206
  Receipt Date: 20150206
  Transmission Date: 20150721
  Serious: Yes (Disabling)
  Sender: FDA-Public Use
  Company Number: None

PATIENT
  Age: 50 Year
  Sex: Female
  Weight: 53.52 kg

DRUGS (4)
  1. MAGNESIUM [Concomitant]
     Active Substance: MAGNESIUM
  2. COQ10 [Concomitant]
     Active Substance: UBIDECARENONE
  3. VITAMIN B [Concomitant]
     Active Substance: VITAMIN B
  4. CIPROFLOXIN [Suspect]
     Active Substance: CIPROFLOXACIN
     Indication: LYME DISEASE
     Dosage: 2 PILLS/DAY TWICE DAILY TAKEN BY MOUTH
     Route: 048
     Dates: start: 20150126, end: 20150131

REACTIONS (9)
  - Fatigue [None]
  - Myalgia [None]
  - Nightmare [None]
  - Abnormal dreams [None]
  - Anxiety [None]
  - Burning sensation [None]
  - Nerve injury [None]
  - Tendon pain [None]
  - Muscular weakness [None]

NARRATIVE: CASE EVENT DATE: 20150130
